FAERS Safety Report 5105559-7 (Version None)
Quarter: 2006Q3

REPORT INFORMATION
  Report Type: 
  Country: None (occurrence: None)
  Receive Date: 20060915
  Receipt Date: 20060905
  Transmission Date: 20061208
  Serious: Yes (Death)
  Sender: FDA-Public Use
  Company Number: US-JNJFOC-20060901843

PATIENT
  Age: 38 Year
  Sex: Female
  Weight: 68.04 kg

DRUGS (11)
  1. ACETAMINOPHEN AND OXYCODONE HCL [Suspect]
     Indication: DRUG USE FOR UNKNOWN INDICATION
     Route: 048
  2. METOCLOPRAMIDE [Suspect]
     Indication: DRUG USE FOR UNKNOWN INDICATION
     Route: 048
  3. LORAZEPAM [Suspect]
     Indication: DRUG USE FOR UNKNOWN INDICATION
     Route: 048
  4. NAPROXEN [Suspect]
     Indication: DRUG USE FOR UNKNOWN INDICATION
     Route: 048
  5. HYOSCYAMINE [Suspect]
     Indication: DRUG USE FOR UNKNOWN INDICATION
     Route: 048
  6. ESOMEPRAZOLE MAGNESIUM [Suspect]
     Indication: DRUG USE FOR UNKNOWN INDICATION
     Route: 048
  7. ONDANSETRON [Suspect]
     Indication: DRUG USE FOR UNKNOWN INDICATION
     Route: 048
  8. SERTRALINE [Suspect]
     Indication: DRUG USE FOR UNKNOWN INDICATION
     Route: 048
  9. PHENOBARBITAL [Suspect]
     Indication: DRUG USE FOR UNKNOWN INDICATION
     Route: 048
  10. BELLADONNA [Suspect]
     Indication: DRUG USE FOR UNKNOWN INDICATION
  11. DOMPERIDONE [Suspect]
     Indication: DRUG USE FOR UNKNOWN INDICATION

REACTIONS (12)
  - ACTIVATED PARTIAL THROMBOPLASTIN TIME PROLONGED [None]
  - ANION GAP INCREASED [None]
  - BLOOD GLUCOSE INCREASED [None]
  - BLOOD PRESSURE DECREASED [None]
  - CARDIAC ARREST [None]
  - CARDIOGENIC SHOCK [None]
  - COMA [None]
  - DRUG ABUSER [None]
  - HEPATIC FAILURE [None]
  - INCOHERENT [None]
  - INTERNATIONAL NORMALISED RATIO INCREASED [None]
  - PROTHROMBIN TIME PROLONGED [None]
